FAERS Safety Report 9317885 (Version 1)
Quarter: 2013Q2

REPORT INFORMATION
  Report Type: Spontaneous
  Country: US (occurrence: US)
  Receive Date: 20130530
  Receipt Date: 20130530
  Transmission Date: 20140414
  Serious: No
  Sender: FDA-Public Use
  Company Number: US-NOVEN-12US005047

PATIENT
  Age: 19 Year
  Sex: Male
  Weight: 58.96 kg

DRUGS (5)
  1. DAYTRANA [Suspect]
     Indication: ASPERGER^S DISORDER
     Dosage: 1 X 30MG AND 1 X 10MG
     Route: 062
     Dates: start: 2010
  2. SEROQUEL [Concomitant]
     Indication: PRODUCT USED FOR UNKNOWN INDICATION
  3. LUVOX [Concomitant]
     Indication: PRODUCT USED FOR UNKNOWN INDICATION
  4. SINGULAIR [Concomitant]
     Indication: PRODUCT USED FOR UNKNOWN INDICATION
  5. LITHIUM [Concomitant]
     Indication: PRODUCT USED FOR UNKNOWN INDICATION

REACTIONS (6)
  - Off label use [Not Recovered/Not Resolved]
  - Drug prescribing error [Not Recovered/Not Resolved]
  - Wrong technique in drug usage process [Not Recovered/Not Resolved]
  - Incorrect drug administration duration [Not Recovered/Not Resolved]
  - Product quality issue [Not Recovered/Not Resolved]
  - No adverse event [None]
